FAERS Safety Report 8294617-4 (Version None)
Quarter: 2012Q2

REPORT INFORMATION
  Report Type: 
  Country: None (occurrence: None)
  Receive Date: 20120418
  Receipt Date: 20120409
  Transmission Date: 20120825
  Serious: Yes (Hospitalization)
  Sender: FDA-Public Use
  Company Number: US-ASTRAZENECA-2012SE03298

PATIENT
  Age: 41 Year
  Sex: Male

DRUGS (3)
  1. SEROQUEL XR [Suspect]
     Indication: MENTAL DISORDER
     Route: 048
  2. NEXIUM [Suspect]
     Route: 048
  3. SEROQUEL XR [Suspect]
     Dosage: UNKNOWN
     Route: 048

REACTIONS (4)
  - INTENTIONAL DRUG MISUSE [None]
  - GASTRIC DISORDER [None]
  - VOMITING [None]
  - GASTRITIS [None]
